FAERS Safety Report 25270135 (Version 1)
Quarter: 2025Q2

REPORT INFORMATION
  Report Type: Spontaneous
  Country: NL (occurrence: NL)
  Receive Date: 20250505
  Receipt Date: 20250505
  Transmission Date: 20250717
  Serious: Yes (Other)
  Sender: NOVARTIS
  Company Number: None

PATIENT
  Age: 35 Year
  Sex: Female
  Weight: 98 kg

DRUGS (3)
  1. ESTRADIOL [Suspect]
     Active Substance: ESTRADIOL
     Indication: Menopausal symptoms
     Dosage: 1 DOSAGE FORM, QD, (1 KEER PER DAG 1 POMPJE, OESTROGEL GEL TRANSDERM 0,6MG/G(0,75MG/DO) IN POMP)
     Route: 062
     Dates: start: 20250204
  2. OXCARBAZEPINE [Suspect]
     Active Substance: OXCARBAZEPINE
     Indication: Epilepsy
     Dosage: 300 MG, Q12H, (2 DD 1, BRAND NAME NOT SPECIFIED)
     Route: 048
     Dates: start: 20050101
  3. SERTRALINE [Suspect]
     Active Substance: SERTRALINE HYDROCHLORIDE
     Indication: Depression
     Dosage: 50 MG, QD, (1 DD 1, TABLET 50MG / BRAND NAME NOT SPECIFIED)
     Route: 048
     Dates: start: 20150101

REACTIONS (3)
  - Epilepsy [Unknown]
  - Petit mal epilepsy [Unknown]
  - Skin hyperpigmentation [Unknown]
